FAERS Safety Report 9706876 (Version 1)
Quarter: 2013Q4

REPORT INFORMATION
  Report Type: Report from Study
  Country: CA (occurrence: CA)
  Receive Date: 20131125
  Receipt Date: 20131125
  Transmission Date: 20140711
  Serious: Yes (Other)
  Sender: FDA-Public Use
  Company Number: CA-JNJFOC-20131112414

PATIENT
  Age: 32 Year
  Sex: Female
  Weight: 56.8 kg

DRUGS (2)
  1. REMICADE [Suspect]
     Indication: CROHN^S DISEASE
     Route: 042
     Dates: start: 201102
  2. CHOLESTYRAMINE [Concomitant]
     Route: 065

REACTIONS (1)
  - Anal fissure [Recovered/Resolved]
